FAERS Safety Report 6247602-8 (Version None)
Quarter: 2009Q2

REPORT INFORMATION
  Report Type: 
  Country: None (occurrence: None)
  Receive Date: 20090626
  Receipt Date: 20090622
  Transmission Date: 20091009
  Serious: Yes (Disabling)
  Sender: FDA-Public Use
  Company Number: US-B.I. PHARMACEUTICALS,INC./RIDGEFIELD-2009-BP-07600BP

PATIENT

DRUGS (2)
  1. SPIRIVA [Suspect]
     Indication: CHRONIC OBSTRUCTIVE PULMONARY DISEASE
     Dosage: 18 MCG
     Dates: start: 20090503
  2. ALBUTEROL [Concomitant]

REACTIONS (8)
  - ABDOMINAL PAIN UPPER [None]
  - ACTIVITIES OF DAILY LIVING IMPAIRED [None]
  - HYPOKINESIA [None]
  - OESOPHAGEAL PAIN [None]
  - PAIN [None]
  - PAIN IN EXTREMITY [None]
  - PAINFUL RESPIRATION [None]
  - WALKING DISABILITY [None]
